FAERS Safety Report 10345754 (Version 1)
Quarter: 2014Q3

REPORT INFORMATION
  Report Type: Spontaneous
  Country: US (occurrence: US)
  Receive Date: 20140728
  Receipt Date: 20140728
  Transmission Date: 20150326
  Serious: No
  Sender: FDA-Public Use
  Company Number: US-009507513-1407USA011233

PATIENT
  Age: 29 Year
  Sex: Female

DRUGS (1)
  1. NEXPLANON [Suspect]
     Active Substance: ETONOGESTREL
     Dosage: UNK
     Route: 059
     Dates: start: 201402

REACTIONS (3)
  - Drug ineffective for unapproved indication [Unknown]
  - Menstruation normal [Unknown]
  - Device kink [Unknown]

NARRATIVE: CASE EVENT DATE: 2014
